APPROVED DRUG PRODUCT: PLASMA-LYTE A IN PLASTIC CONTAINER
Active Ingredient: MAGNESIUM CHLORIDE; POTASSIUM CHLORIDE; SODIUM ACETATE; SODIUM CHLORIDE; SODIUM GLUCONATE
Strength: 30MG/100ML;37MG/100ML;368MG/100ML;526MG/100ML;502MG/100ML
Dosage Form/Route: INJECTABLE;INJECTION
Application: N017378 | Product #002 | TE Code: AP
Applicant: BAXTER HEALTHCARE CORP
Approved: Nov 22, 1982 | RLD: Yes | RS: Yes | Type: RX